FAERS Safety Report 18645095 (Version 3)
Quarter: 2021Q2

REPORT INFORMATION
  Report Type: Spontaneous
  Country: US (occurrence: US)
  Receive Date: 20201221
  Receipt Date: 20210618
  Transmission Date: 20210717
  Serious: Yes (Other)
  Sender: FDA-Public Use
  Company Number: US-JNJFOC-20201224955

PATIENT
  Sex: Female
  Weight: 108.51 kg

DRUGS (12)
  1. CETRIZINE [Concomitant]
     Active Substance: CETIRIZINE HYDROCHLORIDE
     Indication: MULTIPLE ALLERGIES
     Route: 065
     Dates: start: 20170101
  2. MAGNESIUM HYDROXIDE. [Concomitant]
     Active Substance: MAGNESIUM HYDROXIDE
     Indication: MUSCLE SPASMS
     Route: 065
     Dates: start: 20200301
  3. PNV [Concomitant]
     Indication: PREGNANCY
     Route: 065
     Dates: start: 20190501
  4. OVIDRELLE [Concomitant]
     Indication: PREGNANCY
     Route: 065
     Dates: start: 20200828, end: 20200927
  5. TREMFYA [Suspect]
     Active Substance: GUSELKUMAB
     Indication: PSORIASIS
     Route: 065
     Dates: start: 201810, end: 20200407
  6. NASACORT [Concomitant]
     Active Substance: TRIAMCINOLONE ACETONIDE
     Indication: MULTIPLE ALLERGIES
     Route: 045
     Dates: start: 20200201
  7. LETROZOLE. [Concomitant]
     Active Substance: LETROZOLE
     Indication: INFERTILITY
     Route: 065
     Dates: start: 20200201, end: 20200921
  8. CLAVID A [Concomitant]
     Indication: PREGNANCY
     Route: 065
     Dates: start: 20200401, end: 20200901
  9. METFORMIN [Concomitant]
     Active Substance: METFORMIN HYDROCHLORIDE
     Indication: INFERTILITY
     Route: 065
     Dates: start: 20200601, end: 20201001
  10. TREMFYA [Suspect]
     Active Substance: GUSELKUMAB
     Route: 065
     Dates: start: 20200911, end: 202010
  11. PEPCID [Concomitant]
     Active Substance: FAMOTIDINE
     Indication: GASTROOESOPHAGEAL REFLUX DISEASE
     Dosage: PRN
     Route: 065
     Dates: start: 20200301
  12. OMEPRAZOLE. [Concomitant]
     Active Substance: OMEPRAZOLE
     Indication: GASTROOESOPHAGEAL REFLUX DISEASE
     Route: 065
     Dates: start: 20200301, end: 20201001

REACTIONS (2)
  - Exposure during pregnancy [Not Recovered/Not Resolved]
  - Gestational diabetes [Unknown]

NARRATIVE: CASE EVENT DATE: 2020
